FAERS Safety Report 4551707-7 (Version None)
Quarter: 2005Q1

REPORT INFORMATION
  Report Type: 
  Country: None (occurrence: None)
  Receive Date: 20050111
  Receipt Date: 20050103
  Transmission Date: 20050727
  Serious: Yes (Other)
  Sender: FDA-Public Use
  Company Number: 2004CG01915

PATIENT
  Age: 61 Year
  Sex: Female
  Weight: 67 kg

DRUGS (3)
  1. ZOMIG [Suspect]
     Indication: MIGRAINE
     Dosage: 2.5 MG PRN PO
     Route: 048
  2. PROPOFAN [Concomitant]
  3. ADVIL [Concomitant]

REACTIONS (2)
  - CONDITION AGGRAVATED [None]
  - OPEN ANGLE GLAUCOMA [None]
